FAERS Safety Report 17677538 (Version 2)
Quarter: 2020Q2

REPORT INFORMATION
  Report Type: Spontaneous
  Country: US (occurrence: US)
  Receive Date: 20200416
  Receipt Date: 20200513
  Transmission Date: 20200714
  Serious: No
  Sender: FDA-Public Use
  Company Number: US-TEVA-2020-US-1221976

PATIENT
  Sex: Female

DRUGS (2)
  1. DIAZEPAM TEVA [Suspect]
     Active Substance: DIAZEPAM
     Route: 065
  2. DIAZEPAM TEVA [Suspect]
     Active Substance: DIAZEPAM
     Route: 065

REACTIONS (4)
  - Diarrhoea [Unknown]
  - Malaise [Unknown]
  - Drug ineffective [Unknown]
  - Pain [Unknown]
